FAERS Safety Report 9504503 (Version 2)
Quarter: 2013Q4

REPORT INFORMATION
  Report Type: Report from Study
  Country: JP (occurrence: JP)
  Receive Date: 20130906
  Receipt Date: 20131101
  Transmission Date: 20140711
  Serious: Yes (Death, Hospitalization)
  Sender: FDA-Public Use
  Company Number: JP-AMGEN-JPNCT2013062875

PATIENT
  Age: 79 Year
  Sex: Male
  Weight: 81 kg

DRUGS (13)
  1. DARBEPOETIN ALFA [Suspect]
     Indication: NEPHROGENIC ANAEMIA
     Dosage: 40 MUG, QD
     Route: 058
     Dates: start: 20110705, end: 20121002
  2. ALOSITOL [Concomitant]
     Dosage: 100 MG, QD
     Route: 048
  3. MICARDIS [Concomitant]
     Dosage: 80 MG, BID
     Route: 048
  4. NORVASC [Concomitant]
     Dosage: 5 MG, QD
     Route: 048
  5. CRESTOR [Concomitant]
     Dosage: 2.5 MG, QD
     Route: 048
  6. MAINTATE [Concomitant]
     Dosage: 5 MG, BID
     Route: 048
  7. LIPIDIL [Concomitant]
     Dosage: 100 MG, QD
     Route: 048
  8. SELARA [Concomitant]
     Indication: GLOMERULONEPHRITIS CHRONIC
     Dosage: 50 MG, QD
     Route: 048
  9. KAYEXALATE [Concomitant]
     Dosage: 15 G, TID
     Route: 048
  10. MICOMBI COMBINATION [Concomitant]
     Indication: GLOMERULONEPHRITIS CHRONIC
     Dosage: 1 DF, QD
     Route: 048
  11. EQUA [Concomitant]
     Dosage: 100 MG, BID
     Route: 048
  12. RASILEZ [Concomitant]
     Indication: GLOMERULONEPHRITIS CHRONIC
     Dosage: 150 MG, QD
     Route: 048
     Dates: end: 20130724
  13. DIART [Concomitant]
     Dosage: 60 MG, UNK
     Route: 048

REACTIONS (2)
  - Sudden death [Fatal]
  - Pneumonia [Recovering/Resolving]
